FAERS Safety Report 24427076 (Version 3)
Quarter: 2024Q4

REPORT INFORMATION
  Report Type: Report from Study
  Country: IN (occurrence: IN)
  Receive Date: 20241011
  Receipt Date: 20241120
  Transmission Date: 20250114
  Serious: Yes (Other)
  Sender: INCYTE
  Company Number: IN-002147023-NVSC2022IN296721

PATIENT

DRUGS (6)
  1. RUXOLITINIB [Suspect]
     Active Substance: RUXOLITINIB
     Indication: Primary myelofibrosis
     Dosage: 5 MG, BID
     Route: 048
     Dates: start: 20221105, end: 20221212
  2. RUXOLITINIB [Suspect]
     Active Substance: RUXOLITINIB
     Indication: Myelofibrosis
     Dosage: 25 MG, (20 MG-0-5 MG, 20MG IN THE MORNING AND 5MG IN THE NIGHT), OTHER
     Route: 048
     Dates: start: 20221212, end: 20230329
  3. RUXOLITINIB [Suspect]
     Active Substance: RUXOLITINIB
     Dosage: 30 MG, (20 MG-0-10 MG, 20MG IN THE MORNING AND 10MG IN THE NIGHT), OTHER
     Route: 048
     Dates: start: 20230330
  4. RUXOLITINIB [Suspect]
     Active Substance: RUXOLITINIB
     Dosage: 30 MG, BID
     Route: 048
  5. RUXOLITINIB [Suspect]
     Active Substance: RUXOLITINIB
     Dosage: 15 MG, QD
     Route: 048
  6. RUXOLITINIB [Suspect]
     Active Substance: RUXOLITINIB
     Dosage: 15 MG, BID
     Route: 048

REACTIONS (21)
  - Full blood count abnormal [Recovering/Resolving]
  - Anaemia [Recovering/Resolving]
  - Blood creatinine abnormal [Recovering/Resolving]
  - Blood urea abnormal [Recovering/Resolving]
  - Constipation [Recovering/Resolving]
  - Diabetes mellitus [Recovering/Resolving]
  - Kidney infection [Recovering/Resolving]
  - Bowel movement irregularity [Recovering/Resolving]
  - Lymphocyte count abnormal [Recovering/Resolving]
  - Osteolysis [Recovering/Resolving]
  - Neutrophil count abnormal [Recovering/Resolving]
  - Escherichia infection [Recovering/Resolving]
  - Blood potassium increased [Unknown]
  - Pyelonephritis [Recovering/Resolving]
  - Renal function test abnormal [Recovering/Resolving]
  - Back pain [Recovering/Resolving]
  - Blood uric acid abnormal [Recovering/Resolving]
  - Splenomegaly [Recovering/Resolving]
  - Thrombocytopenia [Recovering/Resolving]
  - Fatigue [Recovering/Resolving]
  - White blood cell count abnormal [Recovering/Resolving]

NARRATIVE: CASE EVENT DATE: 20240321
